FAERS Safety Report 18495583 (Version 1)
Quarter: 2020Q4

REPORT INFORMATION
  Report Type: Other
  Country: DE (occurrence: DE)
  Receive Date: 20201112
  Receipt Date: 20201112
  Transmission Date: 20210114
  Serious: No
  Sender: FDA-Public Use
  Company Number: DE-LUPIN PHARMACEUTICALS INC.-2020-03011

PATIENT
  Age: 73 Year
  Sex: Female
  Weight: 62 kg

DRUGS (6)
  1. ARIPIPRAZOLE. [Suspect]
     Active Substance: ARIPIPRAZOLE
     Indication: SCHIZOAFFECTIVE DISORDER
     Dosage: 15 MILLIGRAM, QD, 1-0-0
     Route: 048
  2. MELPERON [Suspect]
     Active Substance: MELPERONE
     Indication: SLEEP DISORDER
     Dosage: 25 MILLIGRAM, QD, 0-0-1
     Route: 048
  3. QUILONUM RETARD [Suspect]
     Active Substance: LITHIUM CARBONATE
     Indication: PROPHYLAXIS
     Dosage: 450 MILLIGRAM, 0.5-0-0.75
     Route: 048
     Dates: start: 2011
  4. MILNACIPRAN [Suspect]
     Active Substance: MILNACIPRAN
     Indication: DEPRESSION
     Dosage: 50 MILLIGRAM, 1-0.5-0
     Route: 048
  5. METFORMIN [Suspect]
     Active Substance: METFORMIN HYDROCHLORIDE
     Indication: TYPE 2 DIABETES MELLITUS
     Dosage: 500 MILLIGRAM, BID, 1-0-1, 2 SEPARATED DOSES
     Route: 048
  6. MILNACIPRAN [Suspect]
     Active Substance: MILNACIPRAN
     Dosage: 300 MILLIGRAM, 1-0.5-0
     Route: 048

REACTIONS (1)
  - Alopecia [Not Recovered/Not Resolved]

NARRATIVE: CASE EVENT DATE: 20191114
